FAERS Safety Report 7893399-5 (Version None)
Quarter: 2011Q4

REPORT INFORMATION
  Report Type: 
  Country: None (occurrence: None)
  Receive Date: 20111104
  Receipt Date: 20111024
  Transmission Date: 20120403
  Serious: Yes (Other)
  Sender: FDA-Public Use
  Company Number: JP-UCBSA-040596

PATIENT
  Age: 86 Year
  Sex: Female
  Weight: 40 kg

DRUGS (6)
  1. LEVOFLOXACIN [Concomitant]
     Indication: PNEUMONIA
     Dosage: DAILY DOSE: 500 MG
     Route: 048
     Dates: start: 20110808, end: 20110815
  2. PHENYTOIN SODIUM CAP [Concomitant]
     Indication: EPILEPSY
     Dosage: DAILY DOSE: 250 MG
     Route: 040
     Dates: start: 20110728, end: 20110728
  3. KEPPRA [Suspect]
     Indication: EPILEPSY
     Route: 048
     Dates: start: 20110729
  4. GLYMACKEN [Concomitant]
     Indication: BRAIN OEDEMA
     Dosage: DAILY DOSE: 600 ML
     Route: 040
     Dates: start: 20110727, end: 20110804
  5. TEGRETOL [Suspect]
     Indication: EPILEPSY
     Dosage: DAILY DOSE: 450 MG
     Route: 048
     Dates: start: 20110728, end: 20110824
  6. UNASYN [Concomitant]
     Indication: PNEUMONIA
     Dosage: DAILY DOSE: 6 G
     Route: 040
     Dates: start: 20110728, end: 20110801

REACTIONS (2)
  - HALLUCINATION [None]
  - DELIRIUM [None]
